FAERS Safety Report 17744622 (Version 1)
Quarter: 2020Q2

REPORT INFORMATION
  Report Type: Spontaneous
  Country: US (occurrence: US)
  Receive Date: 20200504
  Receipt Date: 20200504
  Transmission Date: 20200714
  Serious: No
  Sender: FDA-Public Use
  Company Number: US-BEH-2020116497

PATIENT
  Age: 65 Year
  Sex: Female

DRUGS (1)
  1. HIZENTRA [Suspect]
     Active Substance: HUMAN IMMUNOGLOBULIN G
     Indication: SELECTIVE IGG SUBCLASS DEFICIENCY
     Dosage: 10 GRAM, QW
     Route: 058
     Dates: start: 20161026

REACTIONS (2)
  - Oropharyngeal pain [Unknown]
  - Sinusitis [Unknown]

NARRATIVE: CASE EVENT DATE: 202004
